FAERS Safety Report 20178147 (Version 1)
Quarter: 2021Q4

REPORT INFORMATION
  Report Type: Spontaneous
  Country: US (occurrence: US)
  Receive Date: 20211213
  Receipt Date: 20211213
  Transmission Date: 20220303
  Serious: No
  Sender: FDA-Public Use
  Company Number: US-ELI_LILLY_AND_COMPANY-US202112003608

PATIENT
  Sex: Female

DRUGS (1)
  1. FORTEO [Suspect]
     Active Substance: TERIPARATIDE
     Indication: Product used for unknown indication
     Dosage: 1 IN 1 ONCE
     Route: 058

REACTIONS (6)
  - Varicose vein [Unknown]
  - Mobility decreased [Unknown]
  - Biopsy lip [Unknown]
  - Contusion [Unknown]
  - Fatigue [Unknown]
  - Feeling abnormal [Unknown]
